FAERS Safety Report 17720462 (Version 1)
Quarter: 2020Q2

REPORT INFORMATION
  Report Type: Spontaneous
  Country: US (occurrence: US)
  Receive Date: 20200428
  Receipt Date: 20200428
  Transmission Date: 20200714
  Serious: No
  Sender: FDA-Public Use
  Company Number: US-ROCHE-2299156

PATIENT
  Sex: Female
  Weight: 140 kg

DRUGS (4)
  1. AVASTIN [Suspect]
     Active Substance: BEVACIZUMAB
     Dosage: EYE INJECTION
     Route: 065
  2. AVASTIN [Suspect]
     Active Substance: BEVACIZUMAB
     Dosage: EYE INJECTION
     Route: 065
  3. EYLEA [Concomitant]
     Active Substance: AFLIBERCEPT
  4. AVASTIN [Suspect]
     Active Substance: BEVACIZUMAB
     Indication: NEOVASCULAR AGE-RELATED MACULAR DEGENERATION
     Dosage: EYE INJECTION
     Route: 065
     Dates: end: 2018

REACTIONS (3)
  - Intentional product use issue [Unknown]
  - Macular oedema [Recovered/Resolved]
  - Off label use [Unknown]
